FAERS Safety Report 15439169 (Version 1)
Quarter: 2018Q3

REPORT INFORMATION
  Report Type: Spontaneous
  Country: US (occurrence: US)
  Receive Date: 20180928
  Receipt Date: 20180928
  Transmission Date: 20181010
  Serious: No
  Sender: FDA-Public Use
  Company Number: US-PFIZER INC-2018270169

PATIENT
  Age: 69 Year
  Sex: Female
  Weight: 78 kg

DRUGS (1)
  1. ZYVOX [Suspect]
     Active Substance: LINEZOLID
     Indication: MYCOBACTERIUM FORTUITUM INFECTION
     Dosage: 600 MG, EVERY 12 HOURS FOR 6 MONTHS
     Route: 048

REACTIONS (3)
  - Dizziness [Unknown]
  - Product use issue [Unknown]
  - Drug hypersensitivity [Unknown]
